FAERS Safety Report 9679986 (Version 1)
Quarter: 2013Q4

REPORT INFORMATION
  Report Type: Report from Study
  Country: US (occurrence: US)
  Receive Date: 20131110
  Receipt Date: 20131110
  Transmission Date: 20140711
  Serious: Yes (Hospitalization, Other)
  Sender: FDA-Public Use
  Company Number: PHHY2013US125088

PATIENT
  Sex: Male

DRUGS (14)
  1. GILENYA [Suspect]
     Indication: MULTIPLE SCLEROSIS
     Dosage: 0.5 MG, QD
     Route: 048
     Dates: start: 20110628, end: 20120221
  2. GILENYA [Suspect]
     Dosage: 0.5 MG, QD
     Route: 048
     Dates: start: 20120918
  3. FAMPRIDINE [Concomitant]
  4. NEURONTIN [Concomitant]
     Dosage: 300 MG, UNK
  5. CLARITIN [Concomitant]
     Dosage: 10 MG, UNK
  6. ATROVENT [Concomitant]
  7. ALBUTEROL [Concomitant]
     Dosage: 90 UG, UNK
  8. NASONEX [Concomitant]
  9. TRIAMCINOLONE [Concomitant]
  10. BACLOFEN [Concomitant]
     Dosage: 10 MG, UNK
     Dates: start: 20110330
  11. SEREVENT [Concomitant]
     Dosage: 50 UG, UNK
  12. FLOMAX [Concomitant]
     Dosage: 0.4 MG, UNK
     Dates: start: 20110510
  13. AMPYRA [Concomitant]
  14. NASACORT [Concomitant]

REACTIONS (16)
  - Multiple sclerosis relapse [Recovered/Resolved]
  - Optic neuritis [Recovered/Resolved]
  - Papilloedema [Recovering/Resolving]
  - Visual acuity reduced [Recovered/Resolved with Sequelae]
  - Photophobia [Recovering/Resolving]
  - Blindness unilateral [Recovering/Resolving]
  - Hemiparesis [Recovering/Resolving]
  - Colour blindness [Not Recovered/Not Resolved]
  - Muscle disorder [Recovering/Resolving]
  - Burning sensation [Recovering/Resolving]
  - Hyperaesthesia [Recovering/Resolving]
  - Muscle spasms [Recovering/Resolving]
  - Pain in extremity [Recovering/Resolving]
  - Headache [Unknown]
  - Peroneal nerve palsy [Unknown]
  - Paraesthesia [Not Recovered/Not Resolved]
